FAERS Safety Report 9765854 (Version 1)
Quarter: 2013Q4

REPORT INFORMATION
  Report Type: Spontaneous
  Country: US (occurrence: US)
  Receive Date: 20131217
  Receipt Date: 20131217
  Transmission Date: 20140711
  Serious: No
  Sender: FDA-Public Use
  Company Number: US-BIOGENIDEC-2013BI116002

PATIENT
  Age: 68 Year
  Sex: Female
  Weight: 56 kg

DRUGS (11)
  1. TECFIDERA [Suspect]
     Indication: PRODUCT USED FOR UNKNOWN INDICATION
     Route: 048
  2. TUMS [Concomitant]
  3. ZOFRAN [Concomitant]
  4. NEXIUM [Concomitant]
  5. ATORVASTATIN [Concomitant]
  6. FOSAMAX [Concomitant]
  7. LIPITOR [Concomitant]
  8. IBUPROFEN [Concomitant]
  9. VITAMIN D3 [Concomitant]
  10. ASPIRIN [Concomitant]
  11. VESICARE [Concomitant]

REACTIONS (2)
  - Underdose [Unknown]
  - Vomiting [Recovered/Resolved]
